FAERS Safety Report 6912145-2 (Version None)
Quarter: 2010Q3

REPORT INFORMATION
  Report Type: 
  Country: None (occurrence: None)
  Receive Date: 20100806
  Receipt Date: 20071217
  Transmission Date: 20110219
  Serious: No
  Sender: FDA-Public Use
  Company Number: US-PFIZER INC-2007103292

PATIENT
  Sex: Female
  Weight: 77.11 kg

DRUGS (3)
  1. DETROL LA [Suspect]
     Indication: POLLAKIURIA
     Dates: start: 20071024
  2. LUNESTA [Concomitant]
     Indication: INSOMNIA
     Route: 048
     Dates: start: 20071024
  3. ANTIHYPERTENSIVES [Concomitant]

REACTIONS (1)
  - DRUG INEFFECTIVE [None]
